FAERS Safety Report 14113203 (Version 1)
Quarter: 2017Q4

REPORT INFORMATION
  Report Type: Spontaneous
  Country: DK (occurrence: DK)
  Receive Date: 20171023
  Receipt Date: 20171023
  Transmission Date: 20180321
  Serious: Yes (Life-Threatening, Hospitalization)
  Sender: FDA-Public Use
  Company Number: PHHY2017DK153987

PATIENT
  Age: 64 Year
  Sex: Female

DRUGS (11)
  1. METHADON ALTERNOVA [Suspect]
     Active Substance: METHADONE HYDROCHLORIDE
     Indication: PAIN
     Dosage: 5 MG, TID
     Route: 048
     Dates: start: 201706
  2. BAKLOFEN MYLAN [Suspect]
     Active Substance: BACLOFEN
     Indication: MUSCLE RELAXANT THERAPY
     Dosage: 10 MG, TID
     Route: 048
     Dates: start: 20170519
  3. PINEX [Concomitant]
     Active Substance: ACETAMINOPHEN
     Indication: PAIN
     Dosage: 1000 MG, AS NECESSARY (MAXIMUM 4 TIMES DAILY)
     Route: 048
     Dates: start: 20140804
  4. MIRTAZAPIN HEXAL [Suspect]
     Active Substance: MIRTAZAPINE
     Indication: DEPRESSION
     Dosage: 30 MG, QD ( 2 TABLETS BEFORE BEDTIME)
     Route: 048
     Dates: start: 20160430
  5. CLARITHROMYCIN TEVA [Suspect]
     Active Substance: CLARITHROMYCIN
     Indication: PNEUMONIA
     Dosage: 250 MG, BID
     Route: 048
     Dates: end: 20170726
  6. OXYKODON ACTAVIS [Suspect]
     Active Substance: OXYCODONE HYDROCHLORIDE
     Indication: PAIN
     Dosage: 8 DF, QD (3 DF IN THE MORNING, 3 DF IN THE EVENING AND 2 DF BEFORE BEDTIME)
     Route: 048
     Dates: start: 20131028
  7. EUTHYROX [Concomitant]
     Active Substance: LEVOTHYROXINE SODIUM
     Indication: HYPOTHYROIDISM
     Dosage: 125 UG, QD (IN THE MORNING)
     Route: 048
     Dates: start: 20140427
  8. QUETIAPINE SANDOZ [Suspect]
     Active Substance: QUETIAPINE
     Indication: DEPRESSION
     Dosage: 5 DF, QD (1 DF IN THE MORNING, 1 DF AT NOON AND 3 DF BEFORE BEDTIME)
     Route: 048
     Dates: start: 20160506
  9. TAFIL [Suspect]
     Active Substance: ALPRAZOLAM
     Indication: ANXIETY DISORDER
     Dosage: 1 MG, BID
     Route: 048
     Dates: start: 20160430
  10. KLORZOXAZON [Suspect]
     Active Substance: CHLORZOXAZONE
     Indication: MUSCLE RELAXANT THERAPY
     Dosage: 250 MG, TID
     Route: 048
     Dates: start: 20161118
  11. MEDILAX [Concomitant]
     Indication: CONSTIPATION
     Dosage: 30 ML, BID
     Route: 048
     Dates: start: 20160509

REACTIONS (3)
  - Loss of consciousness [Recovered/Resolved]
  - Accidental overdose [Recovered/Resolved]
  - Respiratory depression [Recovered/Resolved]

NARRATIVE: CASE EVENT DATE: 20170708
